FAERS Safety Report 20255702 (Version 1)
Quarter: 2021Q4

REPORT INFORMATION
  Report Type: Spontaneous
  Country: US (occurrence: None)
  Receive Date: 20211229
  Receipt Date: 20211229
  Transmission Date: 20220303
  Serious: No
  Sender: FDA-Public Use
  Company Number: None

PATIENT
  Sex: Male

DRUGS (1)
  1. CASIRIVIMAB\IMDEVIMAB [Suspect]
     Active Substance: CASIRIVIMAB\IMDEVIMAB
     Indication: COVID-19

REACTIONS (7)
  - Chest discomfort [None]
  - Dyspnoea [None]
  - Back pain [None]
  - Muscle spasms [None]
  - Chest discomfort [None]
  - Arthralgia [None]
  - Infusion related reaction [None]
